FAERS Safety Report 5285559-7 (Version None)
Quarter: 2007Q1

REPORT INFORMATION
  Report Type: 
  Country: None (occurrence: None)
  Receive Date: 20061229
  Receipt Date: 20061023
  Transmission Date: 20070707
  Serious: Yes (Other)
  Sender: FDA-Public Use
  Company Number: 2006UW20484

PATIENT
  Age: 63 Year
  Sex: Female
  Weight: 68.038 kg

DRUGS (7)
  1. CRESTOR [Suspect]
     Indication: HYPERCHOLESTEROLAEMIA
     Dosage: 10 MG PO
     Route: 048
     Dates: start: 20060626, end: 20061018
  2. FOSAMAX [Concomitant]
  3. CALCIUM [Concomitant]
  4. VITAMIN CAP [Concomitant]
  5. ASCORBIC ACID [Concomitant]
  6. VITAMIN A [Concomitant]
  7. ASPIRIN [Concomitant]

REACTIONS (2)
  - DYSPHAGIA [None]
  - MUSCLE SPASMS [None]
